FAERS Safety Report 5134432-3 (Version None)
Quarter: 2006Q4

REPORT INFORMATION
  Report Type: 
  Country: None (occurrence: None)
  Receive Date: 20061023
  Receipt Date: 20061023
  Transmission Date: 20070319
  Serious: Yes (Other)
  Sender: FDA-Public Use
  Company Number: None

PATIENT
  Sex: Female
  Weight: 70.3075 kg

DRUGS (1)
  1. LEVAQUIN [Suspect]
     Indication: PNEUMONIA
     Dosage: 500MG 1X A DAY PO
     Route: 048

REACTIONS (2)
  - PAIN IN EXTREMITY [None]
  - PARAESTHESIA [None]
